FAERS Safety Report 7960944-0 (Version None)
Quarter: 2011Q4

REPORT INFORMATION
  Report Type: 
  Country: None (occurrence: None)
  Receive Date: 20111207
  Receipt Date: 20111201
  Transmission Date: 20120403
  Serious: Yes (Other)
  Sender: FDA-Public Use
  Company Number: US-JNJFOC-20111201041

PATIENT
  Age: 20 Year
  Sex: Male
  Weight: 44.45 kg

DRUGS (4)
  1. DITROPAN [Concomitant]
     Indication: BLADDER DISORDER
     Route: 065
  2. VITAMIN B-12 [Concomitant]
     Indication: MEDICAL DIET
     Route: 065
  3. NEOSPORIN [Suspect]
     Indication: WOUND
     Dosage: HALF TEASPOONFUL
     Route: 061
     Dates: start: 20111106, end: 20111106
  4. MAGNESIUM SULFATE [Concomitant]
     Indication: MEDICAL DIET
     Route: 065

REACTIONS (1)
  - ANAPHYLACTIC SHOCK [None]
